FAERS Safety Report 9888972 (Version 1)
Quarter: 2014Q1

REPORT INFORMATION
  Report Type: Spontaneous
  Country: JP (occurrence: JP)
  Receive Date: 20140211
  Receipt Date: 20140211
  Transmission Date: 20141002
  Serious: Yes (Hospitalization, Other)
  Sender: FDA-Public Use
  Company Number: JP-UCBSA-111564

PATIENT
  Age: 72 Year
  Sex: Male
  Weight: 44 kg

DRUGS (4)
  1. E KEPPRA [Suspect]
     Indication: EPILEPSY
     Route: 048
     Dates: end: 20140109
  2. LEXIN [Suspect]
     Indication: EPILEPSY
     Route: 048
     Dates: end: 20140109
  3. WARFARIN [Suspect]
     Indication: CEREBRAL INFARCTION
     Route: 048
     Dates: end: 20140109
  4. REMINYL [Suspect]
     Indication: DEMENTIA ALZHEIMER^S TYPE
     Route: 048
     Dates: end: 20140109

REACTIONS (2)
  - Drug-induced liver injury [Recovering/Resolving]
  - Fall [Unknown]
